FAERS Safety Report 7371467-4 (Version None)
Quarter: 2011Q1

REPORT INFORMATION
  Report Type: 
  Country: None (occurrence: None)
  Receive Date: 20110324
  Receipt Date: 20110317
  Transmission Date: 20110831
  Serious: Yes (Hospitalization)
  Sender: FDA-Public Use
  Company Number: US-BRISTOL-MYERS SQUIBB COMPANY-15615222

PATIENT
  Age: 65 Year
  Sex: Male
  Weight: 93 kg

DRUGS (2)
  1. CYTOXAN [Suspect]
     Indication: MULTIPLE MYELOMA
     Dosage: 300MG/M2 TAKEN ON DAYS 1,8
     Route: 042
     Dates: start: 20100928, end: 20110114
  2. VELCADE [Suspect]
     Indication: MULTIPLE MYELOMA
     Dosage: STRENGTH: 1.3MG/M2;TAKEN ON DAYS 1,4,8,11
     Route: 042
     Dates: start: 20100907, end: 20110114

REACTIONS (3)
  - DEHYDRATION [None]
  - AUTONOMIC NEUROPATHY [None]
  - DIARRHOEA [None]
